FAERS Safety Report 9155313 (Version 1)
Quarter: 2013Q1

REPORT INFORMATION
  Report Type: Spontaneous
  Country: DE (occurrence: None)
  Receive Date: 20130208
  Receipt Date: 20130208
  Transmission Date: 20140127
  Serious: No
  Sender: FDA-Public Use
  Company Number: 1301DEU008718

PATIENT
  Age: 36 Year
  Sex: Female

DRUGS (1)
  1. KEIMAX [Suspect]
     Indication: BACTERIAL INFECTION
     Route: 048
     Dates: start: 2012, end: 201212

REACTIONS (1)
  - Ageusia [None]
